FAERS Safety Report 5844284-1 (Version None)
Quarter: 2008Q3

REPORT INFORMATION
  Report Type: 
  Country: None (occurrence: None)
  Receive Date: 20080813
  Receipt Date: 20080807
  Transmission Date: 20090109
  Serious: Yes (Death)
  Sender: FDA-Public Use
  Company Number: NL-PFIZER INC-2008066746

PATIENT
  Sex: Female

DRUGS (11)
  1. AMLODIPINE [Suspect]
     Indication: HYPERTENSION
     Route: 048
  2. AMITRIPTYLINE HYDROCHLORIDE [Suspect]
     Indication: DEPRESSION
     Route: 048
  3. HYDROCHLOROTHIAZIDE [Suspect]
     Indication: HYPERTENSION
     Route: 048
  4. RIVOTRIL [Suspect]
     Indication: HYPOTONIA
     Route: 048
  5. TRYPTIZOL [Suspect]
     Indication: DEPRESSION
     Route: 048
  6. SAROTEX [Suspect]
     Indication: DEPRESSION
     Route: 048
  7. SELOKEEN [Suspect]
     Indication: HYPERTENSION
     Route: 048
  8. TRANSTEC TTS [Suspect]
     Indication: PAIN
     Route: 061
  9. DIOVANE [Suspect]
     Indication: HYPERTENSION
     Route: 048
  10. BACLOFEN [Suspect]
     Indication: HYPOTONIA
     Route: 048
  11. ZOFRAN [Suspect]
     Dates: start: 20080222, end: 20080222

REACTIONS (2)
  - COMA [None]
  - DEATH [None]
